FAERS Safety Report 4567984-2 (Version None)
Quarter: 2005Q1

REPORT INFORMATION
  Report Type: 
  Country: None (occurrence: None)
  Receive Date: 20050128
  Receipt Date: 20050118
  Transmission Date: 20050727
  Serious: Yes (Hospitalization)
  Sender: FDA-Public Use
  Company Number: 211548

PATIENT
  Age: 11 Month
  Sex: Female
  Weight: 9.7 kg

DRUGS (1)
  1. NUTROPIN AQ [Suspect]
     Indication: GROWTH HORMONE DEFICIENCY
     Dosage: SEE IMAGE
     Route: 058

REACTIONS (3)
  - CONVULSION [None]
  - HYPOGLYCAEMIA [None]
  - MEDICATION ERROR [None]
